FAERS Safety Report 8242389-1 (Version None)
Quarter: 2012Q1

REPORT INFORMATION
  Report Type: 
  Country: None (occurrence: None)
  Receive Date: 20120329
  Receipt Date: 20120316
  Transmission Date: 20120608
  Serious: Yes (Other)
  Sender: FDA-Public Use
  Company Number: US-BAYER-2012-030100

PATIENT
  Age: 31 Year
  Sex: Female

DRUGS (1)
  1. MIRENA [Suspect]
     Indication: CONTRACEPTION
     Dosage: 20 MCG/24HR, CONT
     Route: 015
     Dates: start: 20090915, end: 20120216

REACTIONS (6)
  - DEVICE DISLOCATION [None]
  - COMPLICATION OF DEVICE REMOVAL [None]
  - DEVICE DEPLOYMENT ISSUE [None]
  - BREAST TENDERNESS [None]
  - ABDOMINAL PAIN LOWER [None]
  - PREGNANCY WITH CONTRACEPTIVE DEVICE [None]
